FAERS Safety Report 4418367-7 (Version None)
Quarter: 2004Q3

REPORT INFORMATION
  Report Type: 
  Country: None (occurrence: None)
  Receive Date: 20040809
  Receipt Date: 20040611
  Transmission Date: 20050211
  Serious: No
  Sender: FDA-Public Use
  Company Number: US-GLAXOSMITHKLINE-A0514443A

PATIENT

DRUGS (1)
  1. PAXIL CR [Suspect]
     Indication: PANIC DISORDER
     Route: 048

REACTIONS (1)
  - WEIGHT INCREASED [None]
